FAERS Safety Report 14350367 (Version 1)
Quarter: 2018Q1

REPORT INFORMATION
  Report Type: Spontaneous
  Country: US (occurrence: US)
  Receive Date: 20180104
  Receipt Date: 20180104
  Transmission Date: 20180509
  Serious: No
  Sender: FDA-Public Use
  Company Number: US-BAYER-2018-000732

PATIENT
  Sex: Female

DRUGS (2)
  1. CLARITIN [Suspect]
     Active Substance: LORATADINE
     Dosage: UNK
  2. CLARISPRAY NASAL ALLERGY [Concomitant]
     Active Substance: FLUTICASONE PROPIONATE

REACTIONS (1)
  - Drug ineffective [Unknown]
